FAERS Safety Report 23756436 (Version 2)
Quarter: 2024Q2

REPORT INFORMATION
  Report Type: Spontaneous
  Country: US (occurrence: US)
  Receive Date: 20240418
  Receipt Date: 20240429
  Transmission Date: 20240716
  Serious: Yes (Other)
  Sender: FDA-Public Use
  Company Number: US-MLMSERVICE-20240328-4918895-1

PATIENT
  Age: 29 Year
  Sex: Male

DRUGS (3)
  1. ANASTROZOLE [Suspect]
     Active Substance: ANASTROZOLE
     Indication: Muscle building therapy
     Dosage: }2 YEARS
     Route: 065
  2. TESTOSTERONE [Suspect]
     Active Substance: TESTOSTERONE
     Indication: Muscle building therapy
     Dosage: }2 YEARS
     Route: 065
  3. CLOMIPHENE [Suspect]
     Active Substance: CLOMIPHENE
     Indication: Muscle building therapy
     Dosage: }2 YEARS
     Route: 065

REACTIONS (2)
  - Secondary hypogonadism [Unknown]
  - Toxic cardiomyopathy [Unknown]
